FAERS Safety Report 17189573 (Version 1)
Quarter: 2019Q4

REPORT INFORMATION
  Report Type: Spontaneous
  Country: DE (occurrence: DE)
  Receive Date: 20191223
  Receipt Date: 20191223
  Transmission Date: 20200122
  Serious: Yes (Hospitalization)
  Sender: FDA-Public Use
  Company Number: DE-JNJFOC-20191220895

PATIENT
  Sex: Female
  Weight: 59 kg

DRUGS (1)
  1. IBUPROFEN. [Suspect]
     Active Substance: IBUPROFEN
     Indication: ANALGESIC THERAPY
     Dosage: 800 MG, QD
     Route: 048
     Dates: start: 20161201, end: 20170125

REACTIONS (7)
  - Musculoskeletal pain [Recovering/Resolving]
  - Pneumonia [Recovered/Resolved]
  - Acute kidney injury [Recovering/Resolving]
  - C-reactive protein increased [Recovered/Resolved]
  - Dyspnoea [Recovered/Resolved]
  - Nausea [Recovered/Resolved]
  - Vomiting [Recovered/Resolved]

NARRATIVE: CASE EVENT DATE: 20170124
